FAERS Safety Report 20332899 (Version 1)
Quarter: 2022Q1

REPORT INFORMATION
  Report Type: Spontaneous
  Country: BR (occurrence: BR)
  Receive Date: 20220113
  Receipt Date: 20220113
  Transmission Date: 20220423
  Serious: Yes (Other)
  Sender: FDA-Public Use
  Company Number: BR-TAKEDA-2021TUS081227

PATIENT
  Age: 26 Year
  Sex: Female
  Weight: 58 kg

DRUGS (1)
  1. DEXILANT [Suspect]
     Active Substance: DEXLANSOPRAZOLE
     Indication: Erosive oesophagitis
     Dosage: 60 MILLIGRAM, QD
     Route: 048
     Dates: start: 20211210, end: 20211216

REACTIONS (8)
  - Fungal pharyngitis [Unknown]
  - Off label use [Unknown]
  - Dysgeusia [Unknown]
  - Early satiety [Unknown]
  - Decreased appetite [Unknown]
  - Breath odour [Unknown]
  - Abdominal pain [Unknown]
  - Adverse drug reaction [Unknown]

NARRATIVE: CASE EVENT DATE: 20211210
